FAERS Safety Report 21496552 (Version 2)
Quarter: 2023Q1

REPORT INFORMATION
  Report Type: Report from Study
  Country: US (occurrence: US)
  Receive Date: 20221022
  Receipt Date: 20230104
  Transmission Date: 20230418
  Serious: No
  Sender: FDA-Public Use
  Company Number: US-ABBVIE-4150126

PATIENT
  Sex: Male

DRUGS (1)
  1. VENCLEXTA [Suspect]
     Active Substance: VENETOCLAX
     Indication: Chronic lymphocytic leukaemia
     Dosage: FORM STRENGTH: 100 MILLIGRAM/TOOK 4 TABLETS BY MOUTH DAILY TOOK WITH A MEAL AND WATER AT THE SAME...
     Route: 048

REACTIONS (2)
  - Memory impairment [Unknown]
  - Asthenia [Unknown]
